FAERS Safety Report 9479533 (Version 1)
Quarter: 2013Q3

REPORT INFORMATION
  Report Type: Spontaneous
  Country: DE (occurrence: DE)
  Receive Date: 20130827
  Receipt Date: 20130827
  Transmission Date: 20140515
  Serious: Yes (Other)
  Sender: FDA-Public Use
  Company Number: DE-GILEAD-2013-0082174

PATIENT
  Age: 87 Year
  Sex: Male

DRUGS (13)
  1. RANOLAZINE [Suspect]
     Indication: ANGINA PECTORIS
     Dosage: 750 MG, BID
     Route: 048
     Dates: start: 20130508, end: 201305
  2. RANOLAZINE [Suspect]
     Dosage: 375 MG, BID
     Route: 048
     Dates: start: 20130521, end: 20130617
  3. RANOLAZINE [Suspect]
     Dosage: 500 MG, BID
     Route: 048
     Dates: start: 20130617
  4. BELOC /00376903/ [Suspect]
     Indication: PRODUCT USED FOR UNKNOWN INDICATION
     Dosage: 95 MG, QD
     Dates: start: 2011
  5. PROCORALAN [Concomitant]
     Dosage: 5 MG, BID
  6. PENTALONG [Concomitant]
     Dosage: 80 MG, TID
  7. AMLODIPIN                          /00972404/ [Concomitant]
     Dosage: 5 MG, BID
  8. ASS RATIOPHARM [Concomitant]
     Dosage: 150 MG, QD
  9. ZOCOR [Concomitant]
     Dosage: 10 MG, QD
  10. RASILEZ HCT [Concomitant]
     Dosage: UNK UNK, QD
  11. CELEBREX [Concomitant]
     Dosage: 200 MG, QD
  12. OMEPRAZOLE [Concomitant]
     Dosage: 20 MG, QD
  13. TORASEMID AL [Concomitant]
     Dosage: 10 MG, BID

REACTIONS (4)
  - Gait disturbance [Recovered/Resolved]
  - Hallucination [Unknown]
  - Dizziness [Recovered/Resolved]
  - Headache [Recovered/Resolved]
